FAERS Safety Report 22241028 (Version 2)
Quarter: 2023Q2

REPORT INFORMATION
  Report Type: Spontaneous
  Country: IT (occurrence: IT)
  Receive Date: 20230421
  Receipt Date: 20230427
  Transmission Date: 20230722
  Serious: Yes (Death, Other)
  Sender: FDA-Public Use
  Company Number: IT-PURDUE PHARMA-USA-2023-0300907

PATIENT
  Age: 45 Year
  Sex: Female

DRUGS (6)
  1. OXYCODONE HYDROCHLORIDE [Suspect]
     Active Substance: OXYCODONE HYDROCHLORIDE
     Indication: Pain management
     Dosage: UNK
     Route: 065
     Dates: start: 2020
  2. TAPENTADOL [Suspect]
     Active Substance: TAPENTADOL
     Indication: Pain management
     Dosage: UNK
     Route: 065
     Dates: start: 2020
  3. AVAPRITINIB [Suspect]
     Active Substance: AVAPRITINIB
     Indication: Systemic mastocytosis
     Dosage: 200 MILLIGRAM, Q24H
     Route: 065
     Dates: start: 202003
  4. AVAPRITINIB [Suspect]
     Active Substance: AVAPRITINIB
     Dosage: 200 MILLIGRAM
     Route: 048
     Dates: start: 202003
  5. AVAPRITINIB [Suspect]
     Active Substance: AVAPRITINIB
     Dosage: 300 MILLIGRAM
     Route: 048
     Dates: start: 202103
  6. FENTANYL [Concomitant]
     Active Substance: FENTANYL
     Indication: Pain
     Dosage: UNK
     Route: 065

REACTIONS (8)
  - Disease progression [Fatal]
  - Leukopenia [Unknown]
  - Off label use [Unknown]
  - Arthralgia [Unknown]
  - Pain in extremity [Unknown]
  - Symptom recurrence [Unknown]
  - Nausea [Unknown]
  - Confusional state [Unknown]

NARRATIVE: CASE EVENT DATE: 20200101
